FAERS Safety Report 24056517 (Version 1)
Quarter: 2024Q3

REPORT INFORMATION
  Report Type: Spontaneous
  Country: CN (occurrence: CN)
  Receive Date: 20240705
  Receipt Date: 20240705
  Transmission Date: 20241016
  Serious: Yes (Hospitalization)
  Sender: PFIZER
  Company Number: CN-PFIZER INC-PV202400086937

PATIENT
  Age: 80 Year
  Sex: Male
  Weight: 43 kg

DRUGS (3)
  1. TIGECYCLINE [Suspect]
     Active Substance: TIGECYCLINE
     Indication: Urinary tract infection
     Dosage: 50 MG, 2X/DAY (FIRST DOSE 100MG)
     Route: 041
     Dates: start: 20240620, end: 20240624
  2. RIVAROXABAN [Concomitant]
     Active Substance: RIVAROXABAN
     Indication: Vascular wall hypertrophy
     Dosage: 10 MG, 1X/DAY
     Route: 048
     Dates: start: 20240613, end: 20240624
  3. RIVAROXABAN [Concomitant]
     Active Substance: RIVAROXABAN
     Indication: Arteriosclerosis

REACTIONS (2)
  - Gastrointestinal haemorrhage [Recovering/Resolving]
  - Off label use [Unknown]

NARRATIVE: CASE EVENT DATE: 20240620
